FAERS Safety Report 8773717 (Version 1)
Quarter: 2012Q4

REPORT INFORMATION
  Report Type: 
  Country: US (occurrence: US)
  Receive Date: 20120907
  Receipt Date: 20120907
  Transmission Date: 20130627
  Serious: Yes (Hospitalization)
  Sender: FDA-Public Use
  Company Number: US-UCBSA-064882

PATIENT
  Sex: Female

DRUGS (1)
  1. VIMPAT [Suspect]
     Indication: CONVULSION
     Dosage: STRENGTH: 200 MG

REACTIONS (2)
  - Cardiac disorder [Not Recovered/Not Resolved]
  - Herpes zoster [Not Recovered/Not Resolved]
